FAERS Safety Report 18403578 (Version 2)
Quarter: 2020Q4

REPORT INFORMATION
  Report Type: Spontaneous
  Country: US (occurrence: US)
  Receive Date: 20201020
  Receipt Date: 20201029
  Transmission Date: 20210114
  Serious: Yes (Other)
  Sender: FDA-Public Use
  Company Number: US-ELI_LILLY_AND_COMPANY-US202010005480

PATIENT
  Age: 64 Year
  Sex: Female

DRUGS (14)
  1. BASAGLAR [Suspect]
     Active Substance: INSULIN GLARGINE
     Dosage: 40 U, EACH EVENING
     Route: 058
     Dates: start: 2015
  2. BASAGLAR [Suspect]
     Active Substance: INSULIN GLARGINE
     Indication: DIABETES MELLITUS
     Dosage: 35 U, EACH MORNING
     Route: 058
     Dates: start: 2015
  3. BASAGLAR [Suspect]
     Active Substance: INSULIN GLARGINE
     Indication: DIABETES MELLITUS
     Dosage: 35 U, EACH MORNING
     Route: 058
     Dates: start: 2015
  4. BASAGLAR [Suspect]
     Active Substance: INSULIN GLARGINE
     Dosage: 35 U, EACH MORNING
     Route: 058
     Dates: start: 20201010
  5. BASAGLAR [Suspect]
     Active Substance: INSULIN GLARGINE
     Dosage: 40 U, EACH EVENING
     Route: 058
     Dates: start: 20201010
  6. BASAGLAR [Suspect]
     Active Substance: INSULIN GLARGINE
     Dosage: 40 U, EACH EVENING
     Route: 058
     Dates: start: 20201014
  7. BASAGLAR [Suspect]
     Active Substance: INSULIN GLARGINE
     Dosage: 40 U, EACH EVENING
     Route: 058
     Dates: start: 2015
  8. BASAGLAR [Suspect]
     Active Substance: INSULIN GLARGINE
     Dosage: 40 U, EACH EVENING
     Route: 058
     Dates: start: 20201010
  9. BASAGLAR [Suspect]
     Active Substance: INSULIN GLARGINE
     Indication: DIABETES MELLITUS
     Dosage: 35 U, EACH MORNING
     Route: 058
     Dates: start: 2015
  10. BASAGLAR [Suspect]
     Active Substance: INSULIN GLARGINE
     Dosage: 40 U, EACH EVENING
     Route: 058
     Dates: start: 2015
  11. BASAGLAR [Suspect]
     Active Substance: INSULIN GLARGINE
     Dosage: 40 U, EACH EVENING
     Route: 058
     Dates: start: 20201014
  12. BASAGLAR [Suspect]
     Active Substance: INSULIN GLARGINE
     Dosage: 35 U, EACH MORNING
     Route: 058
     Dates: start: 20201014
  13. BASAGLAR [Suspect]
     Active Substance: INSULIN GLARGINE
     Dosage: 35 U, EACH MORNING
     Route: 058
     Dates: start: 20201014
  14. BASAGLAR [Suspect]
     Active Substance: INSULIN GLARGINE
     Dosage: 35 U, EACH MORNING
     Route: 058
     Dates: start: 20201010

REACTIONS (9)
  - Blood glucose increased [Unknown]
  - Blood glucose increased [Recovered/Resolved]
  - Accidental underdose [Unknown]
  - Stress [Not Recovered/Not Resolved]
  - Blood pressure increased [Unknown]
  - Wrong technique in product usage process [Unknown]
  - Product dose omission issue [Unknown]
  - Inappropriate schedule of product administration [Unknown]
  - Diabetes mellitus inadequate control [Not Recovered/Not Resolved]

NARRATIVE: CASE EVENT DATE: 202009
